FAERS Safety Report 9032211 (Version 2)
Quarter: 2014Q2

REPORT INFORMATION
  Report Type: Report from Study
  Country: FR (occurrence: FR)
  Receive Date: 20130122
  Receipt Date: 20140616
  Transmission Date: 20141212
  Serious: Yes (Other)
  Sender: FDA-Public Use
  Company Number: FR-MERCK-1301FRA008614

PATIENT
  Age: 39 Year
  Sex: Female

DRUGS (8)
  1. CANCIDAS [Suspect]
     Route: 042
  2. ARACYTINE [Suspect]
     Indication: ACUTE MYELOID LEUKAEMIA
     Dosage: UNK
     Dates: start: 20080322
  3. DAUNORUBICIN [Suspect]
     Indication: ACUTE MYELOID LEUKAEMIA
     Dosage: UNK
     Dates: start: 20080322
  4. AMSACRINE [Concomitant]
     Dosage: UNK
     Dates: start: 20080515
  5. BUSILVEX [Suspect]
     Indication: ACUTE MYELOID LEUKAEMIA
     Dosage: 240 MG, QD
     Route: 042
     Dates: start: 20080718, end: 20080726
  6. ENDOXAN [Suspect]
     Indication: ACUTE MYELOID LEUKAEMIA
     Dosage: 6 G, QD
     Route: 042
     Dates: start: 20080710, end: 20080710
  7. CYCLOSPORINE [Suspect]
     Dosage: UNK
     Dates: start: 200807
  8. METHOTREXATE [Suspect]
     Indication: ACUTE MYELOID LEUKAEMIA
     Dosage: UNK
     Route: 048
     Dates: start: 200807

REACTIONS (2)
  - Hepatocellular injury [Recovered/Resolved]
  - Bone marrow failure [Recovered/Resolved]
